FAERS Safety Report 11840498 (Version 1)
Quarter: 2015Q4

REPORT INFORMATION
  Report Type: Other
  Country: US (occurrence: US)
  Receive Date: 20151216
  Receipt Date: 20151216
  Transmission Date: 20160305
  Serious: No
  Sender: FDA-Public Use
  Company Number: US-IROKO PHARMACEUTICALS LLC-IND1-US-2012-0054

PATIENT
  Sex: Female

DRUGS (2)
  1. INDOCIN [Suspect]
     Active Substance: INDOMETHACIN\INDOMETHACIN SODIUM
     Indication: EYE PAIN
     Route: 065
  2. INDOCIN [Suspect]
     Active Substance: INDOMETHACIN\INDOMETHACIN SODIUM
     Indication: EYE INFLAMMATION

REACTIONS (2)
  - Gastrointestinal disorder [Unknown]
  - Cystitis [Unknown]
